FAERS Safety Report 15057922 (Version 2)
Quarter: 2019Q4

REPORT INFORMATION
  Report Type: Spontaneous
  Country: CA (occurrence: CA)
  Receive Date: 20180625
  Receipt Date: 20191024
  Transmission Date: 20200122
  Serious: No
  Sender: FDA-Public Use
  Company Number: CA-ALKEM LABORATORIES LIMITED-CA-ALKEM-2018-01138

PATIENT
  Sex: Female

DRUGS (1)
  1. DULOXETINE HYDROCHLORIDE. [Suspect]
     Active Substance: DULOXETINE HYDROCHLORIDE
     Indication: PRODUCT USED FOR UNKNOWN INDICATION
     Dosage: 60 MG, QD
     Route: 065

REACTIONS (2)
  - Maternal exposure during breast feeding [Unknown]
  - Exposure during pregnancy [Unknown]
